FAERS Safety Report 16729314 (Version 1)
Quarter: 2019Q4

REPORT INFORMATION
  Report Type: Spontaneous
  Country: US (occurrence: US)
  Receive Date: 20190821
  Receipt Date: 20190821
  Transmission Date: 20200122
  Serious: Yes (Hospitalization)
  Sender: FDA-Public Use
  Company Number: None

PATIENT
  Age: 55 Year
  Sex: Male

DRUGS (5)
  1. PROCHLORPER [Concomitant]
  2. PANTOPRAZOLE [Concomitant]
     Active Substance: PANTOPRAZOLE
  3. CAPECITABINE. [Suspect]
     Active Substance: CAPECITABINE
     Indication: COLORECTAL CANCER
     Route: 048
     Dates: start: 20190522
  4. GABAPENTIN. [Concomitant]
     Active Substance: GABAPENTIN
  5. MEGESTROL [Concomitant]
     Active Substance: MEGESTROL

REACTIONS (2)
  - Therapy cessation [None]
  - Gastrointestinal disorder [None]

NARRATIVE: CASE EVENT DATE: 20190820
